FAERS Safety Report 16183886 (Version 1)
Quarter: 2019Q2

REPORT INFORMATION
  Report Type: Spontaneous
  Country: PK (occurrence: PK)
  Receive Date: 20190411
  Receipt Date: 20190411
  Transmission Date: 20190711
  Serious: Yes (Hospitalization)
  Sender: FDA-Public Use
  Company Number: PK-NOVAST LABORATORIES, LTD-PK-2019NOV000235

PATIENT
  Age: 36 Year
  Sex: Male

DRUGS (2)
  1. CARISOPRODOL\ASPIRIN [Suspect]
     Active Substance: ASPIRIN\CARISOPRODOL
     Indication: ACUTE CORONARY SYNDROME
     Dosage: UNK
  2. CLOPIDOGREL [Suspect]
     Active Substance: CLOPIDOGREL BISULFATE
     Indication: ACUTE CORONARY SYNDROME
     Dosage: UNK

REACTIONS (1)
  - Post procedural haemorrhage [Unknown]
